FAERS Safety Report 5010646-8 (Version None)
Quarter: 2006Q2

REPORT INFORMATION
  Report Type: 
  Country: None (occurrence: None)
  Receive Date: 20060525
  Receipt Date: 20060517
  Transmission Date: 20061013
  Serious: Yes (Other)
  Sender: FDA-Public Use
  Company Number: DE-JNJFOC-20060504256

PATIENT
  Sex: Female

DRUGS (2)
  1. DURAGESIC-100 [Suspect]
     Indication: DRUG USE FOR UNKNOWN INDICATION
     Route: 062
  2. UNSPECIFIED PARKINSON'S DRUG [Interacting]
     Indication: PARKINSON'S DISEASE

REACTIONS (2)
  - DRUG INTERACTION [None]
  - PARKINSONISM [None]
